FAERS Safety Report 5010129-5 (Version None)
Quarter: 2006Q2

REPORT INFORMATION
  Report Type: 
  Country: None (occurrence: None)
  Receive Date: 20060404
  Receipt Date: 20051207
  Transmission Date: 20061013
  Serious: No
  Sender: FDA-Public Use
  Company Number: US200512001356

PATIENT
  Age: 71 Year
  Sex: Male

DRUGS (5)
  1. CYMBALTA [Suspect]
     Indication: DIABETIC NEUROPATHY
     Dosage: 20 MG, 2/D
     Dates: start: 20051001
  2. VICODIN [Concomitant]
  3. DIOVAN [Concomitant]
  4. GLUCOPHAGE ^UNS^ (METFORMIN HYDROCHLORIDE) [Concomitant]
  5. MOTRIN [Concomitant]

REACTIONS (3)
  - ABDOMINAL PAIN UPPER [None]
  - CONSTIPATION [None]
  - TOOTH ABSCESS [None]
